FAERS Safety Report 14247493 (Version 1)
Quarter: 2017Q4

REPORT INFORMATION
  Report Type: Spontaneous
  Country: US (occurrence: None)
  Receive Date: 20171203
  Receipt Date: 20171203
  Transmission Date: 20180321
  Serious: No
  Sender: FDA-Public Use
  Company Number: None

PATIENT
  Sex: Female
  Weight: 81.65 kg

DRUGS (7)
  1. ALLERGY MEDICATIONS [Concomitant]
     Active Substance: UNSPECIFIED INGREDIENT
  2. MOTRIN [Concomitant]
     Active Substance: IBUPROFEN
  3. MAXALT [Concomitant]
     Active Substance: RIZATRIPTAN BENZOATE
  4. MULTI VITAMINS [Concomitant]
     Active Substance: VITAMINS
  5. VITAMIN D [Concomitant]
     Active Substance: CHOLECALCIFEROL
  6. LUPRON [Suspect]
     Active Substance: LEUPROLIDE ACETATE
  7. CALCIUM [Concomitant]
     Active Substance: CALCIUM

REACTIONS (1)
  - General symptom [None]

NARRATIVE: CASE EVENT DATE: 20170815
